FAERS Safety Report 15639533 (Version 1)
Quarter: 2018Q4

REPORT INFORMATION
  Report Type: Spontaneous
  Country: US (occurrence: US)
  Receive Date: 20181120
  Receipt Date: 20181120
  Transmission Date: 20190205
  Serious: Yes (Death)
  Sender: FDA-Public Use
  Company Number: US-BIO PRODUCTS LABORATORY LTD-2059074

PATIENT
  Age: 30 Year
  Sex: Male

DRUGS (3)
  1. LEVOTHYROXINE HORMONE REPLACEMENT [Suspect]
     Active Substance: LEVOTHYROXINE
  2. METHYLPREDNISOLONE. [Suspect]
     Active Substance: METHYLPREDNISOLONE
  3. GENERIC IVIG [Suspect]
     Active Substance: HUMAN IMMUNOGLOBULIN G
     Route: 042

REACTIONS (6)
  - Drug ineffective for unapproved indication [Fatal]
  - Mydriasis [Fatal]
  - Brain herniation [Fatal]
  - Bradycardia [Fatal]
  - Hypertension [Fatal]
  - Off label use [Fatal]
